FAERS Safety Report 4792402-9 (Version None)
Quarter: 2005Q4

REPORT INFORMATION
  Report Type: 
  Country: None (occurrence: None)
  Receive Date: 20051010
  Receipt Date: 20011018
  Transmission Date: 20060501
  Serious: Yes (Hospitalization)
  Sender: FDA-Public Use
  Company Number: 200120341JP

PATIENT
  Age: 71 Year
  Sex: Male

DRUGS (7)
  1. TAXOTERE [Suspect]
     Indication: LUNG NEOPLASM MALIGNANT
     Route: 041
     Dates: start: 20010730, end: 20010730
  2. AQUPLA [Suspect]
     Indication: LUNG NEOPLASM MALIGNANT
     Dates: start: 20010730, end: 20010701
  3. METOCLOPRAMIDE [Concomitant]
  4. RAMOSETRON HYDROCHLORIDE [Concomitant]
  5. I.V. SOLUTIONS [Concomitant]
  6. FUROSEMIDE [Concomitant]
  7. RADIOTHERAPY [Concomitant]
     Dosage: DOSE: TOTAL 58GY
     Dates: end: 20010827

REACTIONS (3)
  - DEPRESSED LEVEL OF CONSCIOUSNESS [None]
  - HYPONATRAEMIA [None]
  - INAPPROPRIATE ANTIDIURETIC HORMONE SECRETION [None]
